FAERS Safety Report 6809617-8 (Version None)
Quarter: 2010Q2

REPORT INFORMATION
  Report Type: 
  Country: None (occurrence: None)
  Receive Date: 20100625
  Receipt Date: 20100621
  Transmission Date: 20101027
  Serious: Yes (Hospitalization)
  Sender: FDA-Public Use
  Company Number: 2010TJ0118

PATIENT
  Age: 39 Year
  Sex: Female
  Weight: 76.7 kg

DRUGS (6)
  1. EPINEPHRINE [Suspect]
     Indication: MESOTHERAPY
     Dosage: ONCE DAILY, ONCE DAILY
  2. AMINOPHYLLINE [Suspect]
     Indication: MESOTHERAPY
  3. FLUOXETINE [Suspect]
     Indication: OBESITY
     Dosage: 10 MG, TWICE PER DAY, ORAL
     Route: 048
  4. EPHEDRINE HYDROCHLORIDE [Suspect]
     Indication: OBESITY
     Dosage: 10 MG, TWICE PER DAY, ORAL
     Route: 048
  5. ANHYDROUS CAFFEINE [Suspect]
     Indication: OBESITY
     Dosage: 50 MG, TWICE PER DAY, ORAL
     Route: 048
  6. GREEN TEA POWDER [Suspect]
     Indication: OBESITY
     Dosage: 250 MG, TWICE PER DAY, ORAL
     Route: 048

REACTIONS (8)
  - COLITIS ISCHAEMIC [None]
  - DRUG EXPOSURE DURING PREGNANCY [None]
  - HYPOPHAGIA [None]
  - LARGE INTESTINAL ULCER HAEMORRHAGE [None]
  - NAUSEA [None]
  - PREGNANCY [None]
  - VOMITING [None]
  - WHITE BLOOD CELL COUNT INCREASED [None]
